FAERS Safety Report 20885102 (Version 1)
Quarter: 2022Q2

REPORT INFORMATION
  Report Type: Spontaneous
  Country: JP (occurrence: JP)
  Receive Date: 20220527
  Receipt Date: 20220527
  Transmission Date: 20220721
  Serious: Yes (Other)
  Sender: FDA-Public Use
  Company Number: JP-PFIZER INC-202200744886

PATIENT
  Sex: Male
  Weight: .587 kg

DRUGS (7)
  1. EPLERENONE [Suspect]
     Active Substance: EPLERENONE
     Dosage: 100 MG
     Route: 064
  2. EPLERENONE [Suspect]
     Active Substance: EPLERENONE
     Dosage: 150 MG
     Route: 064
  3. HYDRALAZINE [Concomitant]
     Active Substance: HYDRALAZINE HYDROCHLORIDE
     Dosage: 60 MG
     Route: 064
  4. HYDRALAZINE [Concomitant]
     Active Substance: HYDRALAZINE HYDROCHLORIDE
     Dosage: 160 MG
     Route: 064
  5. METHYLDOPA [Concomitant]
     Active Substance: METHYLDOPA
     Dosage: 1125 MG
     Route: 064
  6. NIFEDIPINE [Concomitant]
     Active Substance: NIFEDIPINE
     Dosage: 10 MG
     Route: 064
  7. NIFEDIPINE [Concomitant]
     Active Substance: NIFEDIPINE
     Dosage: 60 MG
     Route: 064

REACTIONS (4)
  - Foetal growth restriction [Unknown]
  - Maternal exposure during pregnancy [Unknown]
  - Premature baby [Unknown]
  - Blood thyroid stimulating hormone decreased [Unknown]
